FAERS Safety Report 5441790-9 (Version None)
Quarter: 2007Q3

REPORT INFORMATION
  Report Type: 
  Country: None (occurrence: None)
  Receive Date: 20070904
  Receipt Date: 20070824
  Transmission Date: 20080115
  Serious: Yes (Other)
  Sender: FDA-Public Use
  Company Number: US-JNJFOC-20070805783

PATIENT
  Sex: Female
  Weight: 60.78 kg

DRUGS (1)
  1. REMICADE [Suspect]
     Indication: DRUG USE FOR UNKNOWN INDICATION
     Dosage: REQUEST IN INCREASE DOSAGE FROM 5 TO 10 MG/KG AND TO DECREASE TIME INTERVAL FROM 8 TO 4 WEEKS
     Route: 042

REACTIONS (2)
  - ANAL FISTULA [None]
  - HAEMORRHAGE [None]
